FAERS Safety Report 5945432-5 (Version None)
Quarter: 2008Q4

REPORT INFORMATION
  Report Type: 
  Country: None (occurrence: None)
  Receive Date: 20081107
  Receipt Date: 20081023
  Transmission Date: 20090506
  Serious: Yes (Other)
  Sender: FDA-Public Use
  Company Number: JP-GENENTECH-270765

PATIENT
  Age: 73 Year
  Sex: Female
  Weight: 49 kg

DRUGS (4)
  1. AVASTIN [Suspect]
     Indication: RECTAL CANCER
     Dosage: 250 MG, Q2W
     Route: 042
     Dates: start: 20080916
  2. OXALIPLATIN [Concomitant]
     Indication: RECTAL CANCER
  3. FLUOROURACIL [Concomitant]
     Indication: RECTAL CANCER
  4. LEUCOVORIN CALCIUM [Concomitant]
     Indication: RECTAL CANCER

REACTIONS (1)
  - PERITONEAL PERFORATION [None]
